FAERS Safety Report 6918713-6 (Version None)
Quarter: 2010Q3

REPORT INFORMATION
  Report Type: 
  Country: None (occurrence: None)
  Receive Date: 20100811
  Receipt Date: 20100805
  Transmission Date: 20110219
  Serious: Yes (Death, Hospitalization, Other)
  Sender: FDA-Public Use
  Company Number: PHHY2009CA21612

PATIENT
  Sex: Female

DRUGS (7)
  1. SANDOSTATIN LAR [Suspect]
     Indication: VIPOMA
     Dosage: 30 MG, 03 WEEKS
     Route: 030
     Dates: start: 20090330
  2. SANDOSTATIN LAR [Suspect]
     Dosage: 20 MG, EVERY 3 WEEKS
     Route: 030
  3. SANDOSTATIN LAR [Suspect]
     Dosage: 30 MG, TIW
     Route: 030
     Dates: end: 20100722
  4. SANDOSTATIN [Suspect]
     Indication: VIPOMA
     Dosage: 50 MG, TID
     Route: 058
  5. STREPTOZOCIN [Concomitant]
  6. DOXORUBICIN HCL [Concomitant]
  7. FLUOROURACIL [Concomitant]

REACTIONS (7)
  - ALOPECIA [None]
  - DEATH [None]
  - HEPATIC NEOPLASM MALIGNANT NON-RESECTABLE [None]
  - LIVER OPERATION [None]
  - MALIGNANT NEOPLASM PROGRESSION [None]
  - METASTASES TO LIVER [None]
  - PANCREATIC OPERATION [None]
